FAERS Safety Report 7988339-4 (Version None)
Quarter: 2011Q4

REPORT INFORMATION
  Report Type: 
  Country: None (occurrence: None)
  Receive Date: 20111216
  Receipt Date: 20111213
  Transmission Date: 20120403
  Serious: Yes (Hospitalization)
  Sender: FDA-Public Use
  Company Number: BR-ABBOTT-11P-020-0883186-00

PATIENT
  Sex: Female

DRUGS (2)
  1. HUMIRA [Suspect]
     Route: 058
  2. HUMIRA [Suspect]
     Indication: CROHN'S DISEASE
     Dosage: INDUCTION DOSE
     Route: 058
     Dates: start: 20111209, end: 20111209

REACTIONS (5)
  - CROHN'S DISEASE [None]
  - VOMITING [None]
  - ABDOMINAL PAIN [None]
  - CONSTIPATION [None]
  - FLATULENCE [None]
